FAERS Safety Report 9539132 (Version 1)
Quarter: 2013Q2

REPORT INFORMATION
  Report Type: Spontaneous
  Country: US (occurrence: None)
  Receive Date: 20130517
  Receipt Date: 20130517
  Transmission Date: 20140414
  Serious: No
  Sender: FDA-Public Use
  Company Number: 1000042472

PATIENT
  Sex: Female

DRUGS (3)
  1. VIIBRYD (VILLAZODONE HYDROCHLORIDE) (10 MILLIGRAM, TABLETS) [Suspect]
     Dosage: 10 MG (10 MG, 1 IN 1 D), ORAL
     Route: 048
     Dates: start: 201208, end: 2012
  2. FIORINAL (ASPIRIN, BUTALBITAL, CAFFEINE) (ASPIRIN, BUTALBITAL, CAFFEINE) [Concomitant]
  3. DUEXIS (FAMOTIDINE W/ IBUPROFEN) (FAMOTIDINE W/ IBUPROFEN) [Concomitant]

REACTIONS (1)
  - Mood swings [None]
